FAERS Safety Report 11239606 (Version 4)
Quarter: 2015Q3

REPORT INFORMATION
  Report Type: Report from Study
  Country: DE (occurrence: DE)
  Receive Date: 20150706
  Receipt Date: 20150921
  Transmission Date: 20151125
  Serious: Yes (Death)
  Sender: FDA-Public Use
  Company Number: DE-PFIZER INC-2015210843

PATIENT
  Age: 80 Year
  Sex: Male
  Weight: 85.5 kg

DRUGS (14)
  1. ETOPOSIDE. [Suspect]
     Active Substance: ETOPOSIDE
     Indication: ACUTE MYELOID LEUKAEMIA
     Dosage: 189 MG, UNK
     Dates: start: 20150602, end: 20150604
  2. CYTARABINE. [Suspect]
     Active Substance: CYTARABINE
     Indication: ACUTE MYELOID LEUKAEMIA
     Dosage: 189 MG, UNK
     Dates: start: 20150602, end: 20150608
  3. AMBISOME [Concomitant]
     Active Substance: AMPHOTERICIN B
     Dosage: 250 MG, 1X/DAY (MORNING)
     Route: 042
     Dates: start: 20150614
  4. ATRA [Concomitant]
     Active Substance: TRETINOIN
     Indication: ACUTE MYELOID LEUKAEMIA
     Dosage: 189 MG, UNK
     Dates: start: 20150605
  5. ATRA [Concomitant]
     Active Substance: TRETINOIN
     Dosage: 30 MG, UNK
     Dates: end: 20150622
  6. ZYVOXID [Concomitant]
     Active Substance: LINEZOLID
     Dosage: 600 MG, 2X/DAY (MORNING, EVENING)
     Route: 042
     Dates: start: 20150614
  7. IDARUBICIN HCL [Suspect]
     Active Substance: IDARUBICIN HYDROCHLORIDE
     Indication: ACUTE MYELOID LEUKAEMIA
     Dosage: 23 MG, UNK
     Dates: start: 20150602, end: 20150604
  8. PANTOZOL [Concomitant]
     Active Substance: PANTOPRAZOLE SODIUM
     Dosage: 200 MG, VIA PERFUSOR AT 2.1 ML/H
     Dates: start: 20150616
  9. MERONEM [Concomitant]
     Active Substance: MEROPENEM
     Dosage: 1 G, 3X/DAY (MORNING, NOON, EVENING)
     Route: 042
     Dates: start: 20150609
  10. DELIX /00885601/ [Concomitant]
     Active Substance: RAMIPRIL
     Dosage: 2.5 MG, 1X/DAY (MORNING)
     Dates: start: 20150608
  11. GEMTUZUMAB OZOGAMICIN [Suspect]
     Active Substance: GEMTUZUMAB OZOGAMICIN
     Indication: ACUTE MYELOID LEUKAEMIA
     Dosage: 6 MG, UNK
     Dates: start: 20150603, end: 20150603
  12. ACICLOVIR [Concomitant]
     Active Substance: ACYCLOVIR
     Dosage: 500 MG, 4X/DAY (MORNING, NOON, EVENING, NIGHT)
     Route: 042
     Dates: start: 20150611
  13. PERFALGAN [Concomitant]
     Active Substance: ACETAMINOPHEN
     Dosage: 1 G, UNK
     Route: 042
     Dates: start: 20150622
  14. TOREM /01036501/ [Concomitant]
     Active Substance: TORSEMIDE
     Dosage: 15 MG, DAILY (10 MG IN THE MORNING, 5 MG AT NOON)
     Route: 048
     Dates: start: 20150613

REACTIONS (1)
  - Ventricular fibrillation [Fatal]

NARRATIVE: CASE EVENT DATE: 20150622
